FAERS Safety Report 14776087 (Version 1)
Quarter: 2018Q2

REPORT INFORMATION
  Report Type: Spontaneous
  Country: DK (occurrence: DK)
  Receive Date: 20180418
  Receipt Date: 20180418
  Transmission Date: 20180711
  Serious: Yes (Death)
  Sender: FDA-Public Use
  Company Number: DK-EDENBRIDGE PHARMACEUTICALS, LLC-DK-2018EDE000073

PATIENT
  Age: 69 Year
  Sex: Male

DRUGS (16)
  1. CHLORAMBUCIL [Suspect]
     Active Substance: CHLORAMBUCIL
     Indication: LYMPHOMA
     Dosage: UNK
     Route: 048
     Dates: start: 2004, end: 2009
  2. RITUXIMAB. [Suspect]
     Active Substance: RITUXIMAB
     Dosage: TWO SERIES
     Route: 065
  3. RITUXIMAB. [Suspect]
     Active Substance: RITUXIMAB
     Indication: DISEASE PROGRESSION
     Dosage: UNK
     Route: 065
     Dates: start: 201001
  4. RITUXIMAB. [Suspect]
     Active Substance: RITUXIMAB
     Dosage: SIX TIMES
     Route: 065
     Dates: end: 201008
  5. PREDNISOLONE SODIUM PHOSPHATE. [Suspect]
     Active Substance: PREDNISOLONE SODIUM PHOSPHATE
     Dosage: SIX SERIES
     Route: 065
  6. CYCLOPHOSPHAMIDE. [Suspect]
     Active Substance: CYCLOPHOSPHAMIDE
     Indication: DISEASE PROGRESSION
     Dosage: UNK
     Route: 065
     Dates: start: 201001
  7. CYCLOPHOSPHAMIDE. [Suspect]
     Active Substance: CYCLOPHOSPHAMIDE
     Dosage: SIX TIMES
     Route: 065
     Dates: end: 201008
  8. CYCLOPHOSPHAMIDE. [Suspect]
     Active Substance: CYCLOPHOSPHAMIDE
     Dosage: SIX SERIES
     Route: 065
  9. VINCRISTINE [Suspect]
     Active Substance: VINCRISTINE
     Indication: DISEASE PROGRESSION
     Dosage: UNK
     Route: 065
     Dates: start: 201001
  10. VINCRISTINE [Suspect]
     Active Substance: VINCRISTINE
     Dosage: SIX SERIES
     Route: 065
  11. PREDNISOLONE SODIUM PHOSPHATE. [Suspect]
     Active Substance: PREDNISOLONE SODIUM PHOSPHATE
     Indication: DISEASE PROGRESSION
     Dosage: UNK
     Route: 065
     Dates: start: 201001
  12. RITUXIMAB. [Suspect]
     Active Substance: RITUXIMAB
     Dosage: SIX SERIES
     Route: 065
  13. CYCLOPHOSPHAMIDE. [Suspect]
     Active Substance: CYCLOPHOSPHAMIDE
     Indication: LYMPHOMA
     Dosage: UNK
     Route: 048
     Dates: start: 2004, end: 2009
  14. DOXORUBICIN [Suspect]
     Active Substance: DOXORUBICIN
     Indication: LYMPHOMA
     Dosage: SIX SERIES
     Route: 065
  15. FLUDARABINE [Suspect]
     Active Substance: FLUDARABINE PHOSPHATE
     Indication: DISEASE PROGRESSION
     Dosage: SIX TIMES
     Route: 065
     Dates: end: 201008
  16. RITUXIMAB. [Suspect]
     Active Substance: RITUXIMAB
     Indication: LYMPHOMA
     Dosage: UNK
     Route: 048
     Dates: start: 2004, end: 2009

REACTIONS (1)
  - Cerebral aspergillosis [Fatal]
